FAERS Safety Report 18584033 (Version 1)
Quarter: 2020Q4

REPORT INFORMATION
  Report Type: Spontaneous
  Country: DE (occurrence: DE)
  Receive Date: 20201207
  Receipt Date: 20201207
  Transmission Date: 20210114
  Serious: Yes (Hospitalization)
  Sender: FDA-Public Use
  Company Number: DE-TEVA-2020-DE-1854731

PATIENT
  Age: 15 Year
  Sex: Female
  Weight: 95 kg

DRUGS (3)
  1. LIPROLOG 100E/ML [Suspect]
     Active Substance: INSULIN LISPRO
     Indication: TYPE 1 DIABETES MELLITUS
     Dosage: SINCE 7TH YEAR
     Route: 058
  2. METFORMIN 1000MG FTA [Suspect]
     Active Substance: METFORMIN HYDROCHLORIDE
     Indication: TYPE 1 DIABETES MELLITUS
     Dosage: 2 DOSAGE FORMS DAILY; 1-0-1-0, UNIT DOSE : 1 DOSAGE FORMS, 10/19: DISCONTINUED INDEPENDENTLY ACCORDI
     Route: 048
     Dates: start: 201906, end: 201910
  3. LANTUS [Suspect]
     Active Substance: INSULIN GLARGINE
     Indication: TYPE 1 DIABETES MELLITUS
     Dosage: SINCE 7 YEARS OF AGE, SINCE 7TH YEAR
     Route: 058

REACTIONS (7)
  - Nausea [Unknown]
  - Product administration error [Unknown]
  - Ketoacidosis [Unknown]
  - Back pain [Unknown]
  - Treatment noncompliance [Unknown]
  - Pain [Unknown]
  - Vomiting [Unknown]

NARRATIVE: CASE EVENT DATE: 20191101
